FAERS Safety Report 7058187-0 (Version None)
Quarter: 2010Q4

REPORT INFORMATION
  Report Type: 
  Country: None (occurrence: None)
  Receive Date: 20101022
  Receipt Date: 20101012
  Transmission Date: 20110411
  Serious: No
  Sender: FDA-Public Use
  Company Number: IT-GENENTECH-307101

PATIENT
  Sex: Male

DRUGS (1)
  1. NUTROPIN AQ [Suspect]
     Indication: BODY HEIGHT BELOW NORMAL
     Dosage: 0.5 MG, QD
     Route: 058
     Dates: start: 20090925, end: 20100910

REACTIONS (2)
  - OEDEMA [None]
  - PRIAPISM [None]
